FAERS Safety Report 8082455-7 (Version None)
Quarter: 2012Q1

REPORT INFORMATION
  Report Type: 
  Country: None (occurrence: None)
  Receive Date: 20120127
  Receipt Date: 20110219
  Transmission Date: 20120608
  Serious: No
  Sender: FDA-Public Use
  Company Number: US-ABBOTT-11P-163-0706391-00

PATIENT
  Age: 52 Year
  Sex: Female

DRUGS (3)
  1. HUMIRA [Suspect]
     Indication: RHEUMATOID ARTHRITIS
     Dates: start: 20110127
  2. MOTRIN [Concomitant]
     Indication: HEADACHE
  3. MOTRIN [Concomitant]
     Indication: MUSCLE SPASMS

REACTIONS (3)
  - SENSORY DISTURBANCE [None]
  - CERUMEN IMPACTION [None]
  - EAR DISCOMFORT [None]
